FAERS Safety Report 18600896 (Version 2)
Quarter: 2021Q1

REPORT INFORMATION
  Report Type: Spontaneous
  Country: SE (occurrence: SE)
  Receive Date: 20201210
  Receipt Date: 20210226
  Transmission Date: 20210419
  Serious: Yes (Death, Other)
  Sender: FDA-Public Use
  Company Number: SE-SA-2020SA352713

PATIENT
  Age: 65 Year
  Sex: Male

DRUGS (18)
  1. CAPECITABINE. [Suspect]
     Active Substance: CAPECITABINE
     Indication: ADJUVANT THERAPY
     Dosage: UNK UNK, Q3W (DAY 1?15 / EVERY 3 WEEKS DOSAGE 1800 MG X 2)
     Route: 048
     Dates: start: 20200908, end: 20201011
  2. MINDIAB [Concomitant]
     Active Substance: GLIPIZIDE
     Dosage: 10 MG, QD
     Dates: start: 20170908
  3. BETNOVAT [BETAMETHASONE VALERATE] [Concomitant]
     Dosage: 2 UNK, QD
     Dates: start: 20170929
  4. ALVEDON [Concomitant]
     Active Substance: ACETAMINOPHEN
     Dosage: 2 DF, TID ((2 TABLETS IF NEEDED 3 TIMES DAILY))
     Dates: start: 20200812
  5. BUFOMIX EASYHALER [Concomitant]
     Active Substance: BUDESONIDE\FORMOTEROL FUMARATE
     Dosage: 2 DF, BID (2 INHALATIONS 2 TIMES DAILY)
     Dates: start: 20190206
  6. RAMIPRIL. [Concomitant]
     Active Substance: RAMIPRIL
     Dosage: 10 MG, QD
     Dates: start: 20170908
  7. LORATADINE. [Concomitant]
     Active Substance: LORATADINE
     Dosage: 1 DF, PRN
     Dates: start: 20170907
  8. BETNOVAT [BETAMETHASONE VALERATE] [Concomitant]
     Dosage: UNK
     Dates: start: 20171129
  9. JANUVIA [Concomitant]
     Active Substance: SITAGLIPTIN PHOSPHATE
     Dosage: 100 MG, QD
     Dates: start: 20170908
  10. TROMBYL [Concomitant]
     Active Substance: ASPIRIN
     Dosage: 75 MG, QD
     Dates: start: 20170908
  11. ATORVASTATIN [Concomitant]
     Active Substance: ATORVASTATIN
     Dosage: 20 MG, QD
     Dates: start: 20180721
  12. METFORMIN [Concomitant]
     Active Substance: METFORMIN HYDROCHLORIDE
     Dosage: 2550 MG, QD
     Dates: start: 20170907
  13. BRICANYL [Concomitant]
     Active Substance: TERBUTALINE SULFATE
     Dosage: UNK UNK, PRN 1 INHALATION IF NECESSARY
     Dates: start: 20190206
  14. OMEPRAZOLE. [Concomitant]
     Active Substance: OMEPRAZOLE
     Dosage: 40 MG, QD
     Dates: start: 20170908
  15. HYDROCHLOROTHIAZIDE. [Concomitant]
     Active Substance: HYDROCHLOROTHIAZIDE
     Dosage: 25 MG, QD
     Dates: start: 20170908
  16. OXALIPLATIN. [Suspect]
     Active Substance: OXALIPLATIN
     Indication: ADJUVANT THERAPY
     Dosage: 235 MG, DAY 1 / EVERY 3 WEEKS 235 MG DOSE 1, 8 SEPTEMBER DOSE 2, 29 SEPTEMBER
     Route: 042
     Dates: start: 20200908, end: 20200929
  17. MINIDERM [GLYCEROL] [Concomitant]
     Dosage: 2 UNK, QD
     Dates: start: 20170907
  18. INOLAXOL [STERCULIA URENS GUM] [Concomitant]
     Dosage: 1 UNK, QD
     Dates: start: 20200924

REACTIONS (6)
  - Thrombocytopenia [Fatal]
  - Small intestinal haemorrhage [Fatal]
  - Gastrointestinal mucosal necrosis [Fatal]
  - Septic shock [Fatal]
  - Febrile neutropenia [Fatal]
  - Gastrointestinal oedema [Fatal]

NARRATIVE: CASE EVENT DATE: 202010
